FAERS Safety Report 8200155-7 (Version None)
Quarter: 2012Q1

REPORT INFORMATION
  Report Type: 
  Country: None (occurrence: None)
  Receive Date: 20120312
  Receipt Date: 20120302
  Transmission Date: 20120608
  Serious: Yes (Hospitalization)
  Sender: FDA-Public Use
  Company Number: US-BAYER-2011-103608

PATIENT
  Age: 35 Year
  Sex: Female
  Weight: 86.168 kg

DRUGS (7)
  1. AZITHROMYCIN [Concomitant]
     Dosage: 250 MG, UNK
     Route: 048
     Dates: start: 20070916
  2. YAZ [Suspect]
     Dosage: UNK
     Route: 048
     Dates: start: 20070701, end: 20080701
  3. IMITREX [Concomitant]
     Dosage: 100 MG, UNK
     Dates: start: 20070821
  4. DAILY VITAMINS [Concomitant]
  5. TOPAMAX [Concomitant]
     Dosage: 50 MG, UNK
     Dates: start: 20070720
  6. NSAID'S [Concomitant]
  7. SERTRALINE HYDROCHLORIDE [Concomitant]
     Dosage: 50 MG, UNK
     Dates: start: 20071001

REACTIONS (4)
  - PAIN [None]
  - CHOLECYSTITIS [None]
  - EMOTIONAL DISTRESS [None]
  - GALLBLADDER DISORDER [None]
